FAERS Safety Report 24929074 (Version 1)
Quarter: 2025Q1

REPORT INFORMATION
  Report Type: Spontaneous
  Country: US (occurrence: None)
  Receive Date: 20250204
  Receipt Date: 20250204
  Transmission Date: 20250409
  Serious: Yes (Hospitalization)
  Sender: FDA-CTU
  Company Number: None

PATIENT
  Age: 47 Year
  Sex: Male

DRUGS (1)
  1. SULFUR HEXAFLUORIDE [Suspect]
     Active Substance: SULFUR HEXAFLUORIDE
     Indication: Vascular operation
     Dates: start: 20250127, end: 20250127

REACTIONS (2)
  - Drug hypersensitivity [None]
  - Unresponsive to stimuli [None]

NARRATIVE: CASE EVENT DATE: 20250127
